FAERS Safety Report 8661965 (Version 2)
Quarter: 2013Q4

REPORT INFORMATION
  Report Type: Spontaneous
  Country: FR (occurrence: FR)
  Receive Date: 20120712
  Receipt Date: 20131031
  Transmission Date: 20140711
  Serious: Yes (Life-Threatening, Other)
  Sender: FDA-Public Use
  Company Number: FR-009507513-1207FRA002349

PATIENT
  Age: 17 Year
  Sex: Female

DRUGS (5)
  1. SINGULAIR [Suspect]
     Dosage: 10 MG, QD
     Route: 048
  2. ISOTRETINOIN [Suspect]
     Dosage: 10 MG, QD
     Route: 048
     Dates: start: 201112, end: 20120514
  3. SYMBICORT TURBUHALER [Suspect]
     Dosage: UNK
     Route: 055
  4. XYZALL [Concomitant]
  5. AIROMIR [Concomitant]

REACTIONS (2)
  - Depression [Not Recovered/Not Resolved]
  - Suicide attempt [Recovering/Resolving]
